FAERS Safety Report 16026755 (Version 1)
Quarter: 2019Q1

REPORT INFORMATION
  Report Type: Spontaneous
  Country: US (occurrence: US)
  Receive Date: 20190303
  Receipt Date: 20190303
  Transmission Date: 20190418
  Serious: Yes (Hospitalization)
  Sender: FDA-Public Use
  Company Number: US-TEVA-2019-US-1017208

PATIENT
  Age: 69 Year
  Sex: Female

DRUGS (6)
  1. GDC-0032 (TASELISIB) [Suspect]
     Active Substance: TASELISIB
     Indication: BREAST CANCER STAGE IV
     Dosage: DAILY
     Route: 065
  2. CANAGLIFLOZIN [Suspect]
     Active Substance: CANAGLIFLOZIN
     Indication: HYPERGLYCAEMIA
     Route: 065
  3. PACLITAXEL. [Concomitant]
     Active Substance: PACLITAXEL
     Indication: BREAST CANCER STAGE IV
     Dosage: WEEKLY
     Route: 065
  4. DEXAMETHASONE. [Suspect]
     Active Substance: DEXAMETHASONE
     Indication: PREMEDICATION
     Route: 048
  5. METFORMIN [Suspect]
     Active Substance: METFORMIN HYDROCHLORIDE
     Indication: HYPERGLYCAEMIA
     Route: 065
  6. METFORMIN [Suspect]
     Active Substance: METFORMIN HYDROCHLORIDE
     Indication: HYPERGLYCAEMIA
     Route: 065

REACTIONS (6)
  - Ketoacidosis [Recovered/Resolved]
  - Diarrhoea [Unknown]
  - Hyperglycaemia [Recovered/Resolved]
  - Nausea [Unknown]
  - Dizziness [None]
  - Vomiting [None]
